FAERS Safety Report 7307977-5 (Version None)
Quarter: 2011Q1

REPORT INFORMATION
  Report Type: 
  Country: None (occurrence: None)
  Receive Date: 20110223
  Receipt Date: 20110215
  Transmission Date: 20110831
  Serious: Yes (Death, Hospitalization)
  Sender: FDA-Public Use
  Company Number: US-BAYER-201028021NA

PATIENT
  Sex: Male

DRUGS (2)
  1. NEXAVAR [Suspect]
     Route: 048
     Dates: start: 20100801
  2. NEXAVAR [Suspect]
     Indication: RENAL CELL CARCINOMA
     Dosage: WAS HELD FOR APPROXIMATELY ONE WEEK
     Route: 048
     Dates: start: 20100619

REACTIONS (7)
  - ERYTHEMA [None]
  - PRURITUS [None]
  - BLOOD POTASSIUM INCREASED [None]
  - DEATH [None]
  - DRY SKIN [None]
  - FLUSHING [None]
  - RENAL IMPAIRMENT [None]
